FAERS Safety Report 13304551 (Version 1)
Quarter: 2017Q1

REPORT INFORMATION
  Report Type: Spontaneous
  Country: US (occurrence: US)
  Receive Date: 20170307
  Receipt Date: 20170307
  Transmission Date: 20170428
  Serious: Yes (Hospitalization)
  Sender: FDA-Public Use
  Company Number: None

PATIENT
  Age: 59 Year
  Sex: Female
  Weight: 90.1 kg

DRUGS (1)
  1. OXALIPLATIN 5MG/ML 20ML VIAL TEVA [Suspect]
     Active Substance: OXALIPLATIN
     Indication: COLON CANCER
     Route: 042
     Dates: start: 20170201, end: 20170222

REACTIONS (8)
  - Feeling hot [None]
  - Unevaluable event [None]
  - Dyspnoea [None]
  - Chest discomfort [None]
  - Blood pressure decreased [None]
  - Infusion related reaction [None]
  - Dizziness [None]
  - Abdominal pain upper [None]

NARRATIVE: CASE EVENT DATE: 20170222
